FAERS Safety Report 4591862-6 (Version None)
Quarter: 2005Q1

REPORT INFORMATION
  Report Type: 
  Country: None (occurrence: None)
  Receive Date: 20050225
  Receipt Date: 20050217
  Transmission Date: 20050727
  Serious: Yes (Hospitalization)
  Sender: FDA-Public Use
  Company Number: US-MERCK-0502USA02436

PATIENT
  Age: 34 Year
  Sex: Male

DRUGS (6)
  1. DECADRON [Suspect]
     Indication: CEREBRAL TOXOPLASMOSIS
     Route: 048
  2. PYRIMETHAMINE [Suspect]
     Indication: CEREBRAL TOXOPLASMOSIS
     Route: 065
  3. SULFADIAZINE [Suspect]
     Indication: CEREBRAL TOXOPLASMOSIS
     Route: 065
  4. LAMIVUDINE [Suspect]
     Indication: MYCOBACTERIUM AVIUM COMPLEX INFECTION
     Route: 065
  5. LOPINAVIR AND RITONAVIR [Suspect]
     Indication: MYCOBACTERIUM AVIUM COMPLEX INFECTION
     Route: 065
  6. AZITHROMYCIN [Suspect]
     Indication: MYCOBACTERIUM AVIUM COMPLEX INFECTION
     Route: 065

REACTIONS (7)
  - ANGIONEUROTIC OEDEMA [None]
  - DRUG TOXICITY [None]
  - EOSINOPHILIA [None]
  - HEPATITIS [None]
  - HYDROCEPHALUS [None]
  - PYREXIA [None]
  - STRONGYLOIDIASIS [None]
